FAERS Safety Report 5766542-1 (Version None)
Quarter: 2008Q2

REPORT INFORMATION
  Report Type: 
  Country: None (occurrence: None)
  Receive Date: 20080612
  Receipt Date: 20080529
  Transmission Date: 20081010
  Serious: Yes (Other)
  Sender: FDA-Public Use
  Company Number: HU-ROCHE-567493

PATIENT
  Age: 65 Year
  Sex: Female

DRUGS (1)
  1. BONIVA [Suspect]
     Indication: OSTEOPOROSIS
     Route: 042
     Dates: start: 20080101

REACTIONS (2)
  - HYPERAEMIA [None]
  - OEDEMA PERIPHERAL [None]
